FAERS Safety Report 7799001-5 (Version None)
Quarter: 2011Q4

REPORT INFORMATION
  Report Type: 
  Country: None (occurrence: None)
  Receive Date: 20111005
  Receipt Date: 20111005
  Transmission Date: 20120403
  Serious: No
  Sender: FDA-Public Use
  Company Number: None

PATIENT

DRUGS (5)
  1. LEVOTHYROXINE SODIUM [Concomitant]
  2. PREVACID [Suspect]
     Indication: HELICOBACTER INFECTION
  3. PREVACID [Suspect]
     Indication: PEPTIC ULCER
  4. NIFEDIPINE [Concomitant]
  5. VITAMIN D [Concomitant]

REACTIONS (9)
  - TREATMENT NONCOMPLIANCE [None]
  - HYPOCALCAEMIA [None]
  - DRUG INTERACTION [None]
  - TETANY [None]
  - BLOOD PHOSPHORUS INCREASED [None]
  - ELECTROCARDIOGRAM QT PROLONGED [None]
  - HYPOPARATHYROIDISM [None]
  - MALABSORPTION [None]
  - CONVULSION [None]
